FAERS Safety Report 8027243-2 (Version None)
Quarter: 2012Q1

REPORT INFORMATION
  Report Type: 
  Country: None (occurrence: None)
  Receive Date: 20120106
  Receipt Date: 20120104
  Transmission Date: 20120608
  Serious: No
  Sender: FDA-Public Use
  Company Number: US-TEVA-316018USA

PATIENT
  Sex: Female
  Weight: 68.1 kg

DRUGS (4)
  1. PROAIR HFA [Suspect]
     Indication: COUGH
     Dosage: 180 MICROGRAM;
     Route: 055
     Dates: start: 20111231
  2. GUAIFENESIN [Concomitant]
     Indication: PRODUCTIVE COUGH
     Dosage: 2 TABLET;
     Route: 048
     Dates: start: 20111231
  3. AZITHROMYCIN [Concomitant]
     Indication: RESPIRATORY TRACT INFECTION
     Route: 048
     Dates: start: 20111231, end: 20120104
  4. FISH OIL [Concomitant]
     Indication: SUPPLEMENTATION THERAPY
     Route: 048

REACTIONS (1)
  - DYSGEUSIA [None]
